FAERS Safety Report 8858150 (Version 1)
Quarter: 2012Q4

REPORT INFORMATION
  Report Type: 
  Country: US (occurrence: US)
  Receive Date: 20121024
  Receipt Date: 20121024
  Transmission Date: 20130627
  Serious: No
  Sender: FDA-Public Use
  Company Number: US-AMGEN-USASP2011065828

PATIENT
  Sex: Female

DRUGS (12)
  1. ENBREL [Suspect]
     Indication: PRODUCT USED FOR UNKNOWN INDICATION
     Dosage: 50 mg, qwk
     Route: 058
  2. JANUVIA [Concomitant]
     Dosage: 25 mg, UNK
  3. CRESTOR [Concomitant]
     Dosage: 10 mg, UNK
  4. GABAPENTIN [Concomitant]
     Dosage: 100 mg, UNK
  5. ADVAIR [Concomitant]
  6. NASONEX [Concomitant]
  7. CALCIUM [Concomitant]
     Dosage: 500 mg, UNK
  8. MULTIVITAMINS [Concomitant]
  9. VITAMIN C [Concomitant]
     Dosage: 500 mg, UNK
  10. FISH OIL [Concomitant]
  11. HYDROCODONE/APAP [Concomitant]
  12. ALEVE [Concomitant]
     Dosage: 220 mg, UNK

REACTIONS (3)
  - Alopecia [Unknown]
  - Dyspnoea [Unknown]
  - Sinusitis [Unknown]
